FAERS Safety Report 7872131-5 (Version None)
Quarter: 2011Q4

REPORT INFORMATION
  Report Type: 
  Country: None (occurrence: None)
  Receive Date: 20111029
  Receipt Date: 20110315
  Transmission Date: 20120403
  Serious: No
  Sender: FDA-Public Use
  Company Number: US-AMGEN-USASP2011014207

PATIENT
  Age: 41 Year
  Sex: Male
  Weight: 88.435 kg

DRUGS (3)
  1. ENBREL [Suspect]
     Indication: PRODUCT USED FOR UNKNOWN INDICATION
     Dosage: 50 MG, QWK
     Route: 058
  2. TYLENOL (CAPLET) [Concomitant]
     Dosage: 325 MG, UNK
  3. MOBIC [Concomitant]
     Dosage: 15 MG, UNK

REACTIONS (1)
  - SNEEZING [None]
